FAERS Safety Report 23987924 (Version 1)
Quarter: 2024Q2

REPORT INFORMATION
  Report Type: Spontaneous
  Country: PH (occurrence: PH)
  Receive Date: 20240619
  Receipt Date: 20240619
  Transmission Date: 20240716
  Serious: No
  Sender: FDA-Public Use
  Company Number: PH-WT-2024-APC-058763

PATIENT

DRUGS (2)
  1. DUTASTERIDE [Suspect]
     Active Substance: DUTASTERIDE
     Route: 065
  2. TAMSULOSIN [Suspect]
     Active Substance: TAMSULOSIN
     Route: 065

REACTIONS (2)
  - Drug ineffective [Unknown]
  - Heart rate increased [Unknown]
